FAERS Safety Report 15979128 (Version 1)
Quarter: 2019Q1

REPORT INFORMATION
  Report Type: Spontaneous
  Country: US (occurrence: US)
  Receive Date: 20190219
  Receipt Date: 20190219
  Transmission Date: 20190418
  Serious: No
  Sender: FDA-Public Use
  Company Number: US-DRREDDYS-USA/USA/19/0107886

PATIENT
  Age: 76 Year
  Sex: Female
  Weight: 54.88 kg

DRUGS (3)
  1. CARVEDIOL [Concomitant]
     Active Substance: CARVEDILOL
     Indication: CARDIAC DISORDER
  2. ATORVASTATIN [Suspect]
     Active Substance: ATORVASTATIN
     Indication: BLOOD CHOLESTEROL INCREASED
     Dosage: 40 MG TABLET BY MOUTH EVERY NIGHT AT BED TIME
     Route: 048
     Dates: start: 201705
  3. SYNTHROID [Concomitant]
     Active Substance: LEVOTHYROXINE SODIUM
     Indication: HYPOTHYROIDISM
     Dosage: DIAGNOSED WITH HYPOTHYROIDIDM SINCE SHE 30 YEARS OLD, 46 YEARS AGO, HAS BEEN TAKING THE SYNTHYROID.
     Route: 048

REACTIONS (3)
  - Pharyngeal oedema [Not Recovered/Not Resolved]
  - Dry mouth [Not Recovered/Not Resolved]
  - Dysphagia [Not Recovered/Not Resolved]

NARRATIVE: CASE EVENT DATE: 201710
